FAERS Safety Report 13112437 (Version 1)
Quarter: 2017Q1

REPORT INFORMATION
  Report Type: Spontaneous
  Country: GB (occurrence: GB)
  Receive Date: 20170113
  Receipt Date: 20170113
  Transmission Date: 20170428
  Serious: Yes (Hospitalization)
  Sender: FDA-Public Use
  Company Number: GB-AUROBINDO-AUR-APL-2017-00117

PATIENT
  Age: 73 Year

DRUGS (13)
  1. OMEPRAZOLE GASTRO-RESISTANT CAPSULE [Suspect]
     Active Substance: OMEPRAZOLE
     Indication: PRODUCT USED FOR UNKNOWN INDICATION
     Dosage: 20 MG, ONCE A DAY
  2. SERTRALINE [Suspect]
     Active Substance: SERTRALINE HYDROCHLORIDE
     Indication: PRODUCT USED FOR UNKNOWN INDICATION
     Dosage: 100MG 1 WEEK THEN REDUCING DOSE TO 50MG ONCE A DAY THEN CHANGE TO MIRTAZEPINE
     Route: 065
     Dates: start: 20160630
  3. SALBUTAMOL [Concomitant]
     Active Substance: ALBUTEROL
     Indication: PRODUCT USED FOR UNKNOWN INDICATION
     Dosage: ONE OR TWO PUFFS TO BE INHALED UP TO FOUR TIMES A DAY
     Route: 055
  4. PROPRANOLOL [Suspect]
     Active Substance: PROPRANOLOL HYDROCHLORIDE
     Indication: PRODUCT USED FOR UNKNOWN INDICATION
     Dosage: 80 MG, ONCE A DAY
  5. MIRTAZAPINE FILM-COATED TABLETS 15MG [Suspect]
     Active Substance: MIRTAZAPINE
     Indication: PRODUCT USED FOR UNKNOWN INDICATION
     Dosage: 15 MG, ONCE A DAY
  6. RISEDRONATE SODIUM. [Concomitant]
     Active Substance: RISEDRONATE SODIUM
     Indication: PRODUCT USED FOR UNKNOWN INDICATION
     Dosage: 35 MG, EVERY WEEK
  7. CALCIUM CARBONATE. [Concomitant]
     Active Substance: CALCIUM CARBONATE
     Indication: PRODUCT USED FOR UNKNOWN INDICATION
     Dosage: 1.25 G, ONCE A DAY
     Route: 065
  8. SALMETEROL/FLUTICASONPROPIONAAT [Concomitant]
     Active Substance: SALMETEROL
     Indication: PRODUCT USED FOR UNKNOWN INDICATION
     Dosage: 1 DF, TWO TIMES A DAY
     Route: 055
  9. TIOTROPIUM BROMIDE [Concomitant]
     Active Substance: TIOTROPIUM BROMIDE
     Indication: PRODUCT USED FOR UNKNOWN INDICATION
     Dosage: 18 ?G, ONCE A DAY
  10. ZAPAIN [Concomitant]
     Active Substance: ACETAMINOPHEN\CODEINE PHOSPHATE
     Indication: PRODUCT USED FOR UNKNOWN INDICATION
     Dosage: 1 OR 2 TO BE TAKEN 4 TIMES A DAY. 30MG/ 500MG
     Route: 065
  11. TRAMADOL. [Concomitant]
     Active Substance: TRAMADOL
     Indication: PRODUCT USED FOR UNKNOWN INDICATION
     Dosage: 1 OR 2 EVERY 4 HOURS. MAXIMUM 8 CAPSULES IN 24 HOURS.112 CAPSULE - NOT TAKING.
     Route: 065
     Dates: start: 20160606
  12. MENTHOL. [Concomitant]
     Active Substance: MENTHOL
     Indication: PRODUCT USED FOR UNKNOWN INDICATION
     Dosage: AS DIRECTED 500 GRAM
     Route: 065
     Dates: start: 20160413
  13. COLECALCIFEROL [Concomitant]
     Active Substance: CHOLECALCIFEROL
     Indication: PRODUCT USED FOR UNKNOWN INDICATION
     Dosage: 400 IU, ONCE A DAY
     Route: 065

REACTIONS (3)
  - Hyponatraemia [Recovered/Resolved]
  - Hypotension [Recovered/Resolved]
  - Drug administration error [Recovered/Resolved]
